FAERS Safety Report 25676238 (Version 7)
Quarter: 2025Q4

REPORT INFORMATION
  Report Type: Spontaneous
  Country: EU (occurrence: None)
  Receive Date: 20250813
  Receipt Date: 20251015
  Transmission Date: 20260117
  Serious: No
  Sender: ORGANON
  Company Number: EU-SANDOZ-SDZ2025FR053145

PATIENT
  Age: 39 Year
  Sex: Male

DRUGS (7)
  1. MOMETASONE FUROATE [Suspect]
     Active Substance: MOMETASONE FUROATE
     Indication: Product used for unknown indication
     Dosage: 1 PER 50 MG BINDER (2 TO 6 PER BINDER) (INHALATION USE)
  2. MONTELUKAST [Suspect]
     Active Substance: MONTELUKAST
     Indication: Product used for unknown indication
     Dosage: 10 MG
  3. ERELZI [Suspect]
     Active Substance: ETANERCEPT-SZZS
     Indication: Polyarthritis
     Dosage: 50 MILLIGRAM, QW 1 INJECTION WITHIN 7 DAYS
     Dates: start: 20250429, end: 202505
  4. ERELZI [Suspect]
     Active Substance: ETANERCEPT-SZZS
     Dosage: 50 MILLIGRAM, QW
  5. BILASTINE [Suspect]
     Active Substance: BILASTINE
     Indication: Product used for unknown indication
     Dosage: 20 MILLIGRAM, 1 AT NIGHT
     Dates: start: 2021
  6. INNOVAIR [Suspect]
     Active Substance: BECLOMETHASONE DIPROPIONATE\FORMOTEROL
     Indication: Product used for unknown indication
     Dosage: 100 MILLIGRAM, 2 PUFFS MORNING AND EVENING (INHALATION USE)
  7. BECLOMETHASONE DIPROPIONATE [Suspect]
     Active Substance: BECLOMETHASONE DIPROPIONATE
     Indication: Product used for unknown indication
     Dosage: 100 MG,2 PUFFS MORNING AND EVENING
     Route: 065

REACTIONS (3)
  - Injection site haematoma [Unknown]
  - Injection site pain [Unknown]
  - Product availability issue [Unknown]
